FAERS Safety Report 11167372 (Version 1)
Quarter: 2015Q2

REPORT INFORMATION
  Report Type: Spontaneous
  Country: US (occurrence: US)
  Receive Date: 20150605
  Receipt Date: 20150605
  Transmission Date: 20150821
  Serious: No
  Sender: FDA-Public Use
  Company Number: US-BIOGENIDEC-2015BI075842

PATIENT
  Age: 64 Year
  Sex: Female

DRUGS (15)
  1. TECFIDERA [Suspect]
     Active Substance: DIMETHYL FUMARATE
     Indication: MULTIPLE SCLEROSIS
     Route: 048
     Dates: start: 20150415
  2. FOLIC ACID. [Concomitant]
     Active Substance: FOLIC ACID
  3. DIVALPROEX SODIUM. [Concomitant]
     Active Substance: DIVALPROEX SODIUM
  4. EVISTA [Concomitant]
     Active Substance: RALOXIFENE HYDROCHLORIDE
  5. METHOTREXATE [Concomitant]
     Active Substance: METHOTREXATE
  6. FLURBIPROFEN. [Concomitant]
     Active Substance: FLURBIPROFEN
  7. ASPIRIN LOW DOSE [Concomitant]
     Active Substance: ASPIRIN
  8. VESICARE [Concomitant]
     Active Substance: SOLIFENACIN SUCCINATE
  9. MULTIVITAMINS [Concomitant]
     Active Substance: VITAMINS
  10. OMEPRAZOLE. [Concomitant]
     Active Substance: OMEPRAZOLE
  11. HYDROCODONE BITARTRATE AND ACETAMINOPHEN [Concomitant]
     Active Substance: ACETAMINOPHEN\HYDROCODONE BITARTRATE
  12. CALCIUM [Concomitant]
     Active Substance: CALCIUM
  13. BACLOFEN. [Concomitant]
     Active Substance: BACLOFEN
  14. ACTONEL [Concomitant]
     Active Substance: RISEDRONATE SODIUM
  15. VITAMIN D [Concomitant]
     Active Substance: CHOLECALCIFEROL

REACTIONS (3)
  - Memory impairment [Unknown]
  - Nausea [Recovered/Resolved]
  - Drug dose omission [Unknown]
